FAERS Safety Report 24724455 (Version 1)
Quarter: 2024Q4

REPORT INFORMATION
  Report Type: Spontaneous
  Country: US (occurrence: US)
  Receive Date: 20241212
  Receipt Date: 20241212
  Transmission Date: 20250114
  Serious: Yes (Death)
  Sender: AMNEAL
  Company Number: US-AMNEAL-2024-AMRX-04467

PATIENT
  Sex: Female
  Weight: 38.095 kg

DRUGS (1)
  1. BACLOFEN [Suspect]
     Active Substance: BACLOFEN
     Indication: Product used for unknown indication
     Dosage: 924.9 MICROGRAM (2000 MCG/ML), QD
     Route: 037

REACTIONS (1)
  - Death [Fatal]
